FAERS Safety Report 7742636 (Version 2)
Quarter: 2013Q2

REPORT INFORMATION
  Report Type: Report from Study
  Country: CA (occurrence: CA)
  Receive Date: 20101229
  Receipt Date: 20130620
  Transmission Date: 20140414
  Serious: Yes (Other)
  Sender: FDA-Public Use
  Company Number: CA-ROCHE-750060

PATIENT
  Age: 42 Year
  Sex: Female
  Weight: 81 kg

DRUGS (9)
  1. ACTEMRA [Suspect]
     Indication: RHEUMATOID ARTHRITIS
     Route: 042
     Dates: start: 20100901, end: 20100929
  2. ACTEMRA [Suspect]
     Route: 042
  3. ACTEMRA [Suspect]
     Route: 064
  4. ACTEMRA [Suspect]
     Route: 065
  5. ACTEMRA [Suspect]
     Route: 065
  6. METHOTREXATE [Concomitant]
  7. FOLIC ACID [Concomitant]
  8. TRAMACET [Concomitant]
  9. IBUPROFEN [Concomitant]

REACTIONS (8)
  - Myasthenia gravis [Not Recovered/Not Resolved]
  - Nasopharyngitis [Recovered/Resolved]
  - Oral herpes [Not Recovered/Not Resolved]
  - Diplopia [Unknown]
  - Headache [Unknown]
  - Back pain [Not Recovered/Not Resolved]
  - Kidney infection [Not Recovered/Not Resolved]
  - Urinary tract infection [Not Recovered/Not Resolved]
